FAERS Safety Report 9485952 (Version 2)
Quarter: 2013Q3

REPORT INFORMATION
  Report Type: Report from Study
  Country: BE (occurrence: BE)
  Receive Date: 20130829
  Receipt Date: 20130913
  Transmission Date: 20140515
  Serious: Yes (Hospitalization, Other)
  Sender: FDA-Public Use
  Company Number: BE-ABBOTT-13P-013-1137123-00

PATIENT
  Age: 57 Year
  Sex: Male

DRUGS (3)
  1. HUMIRA [Suspect]
     Indication: ANKYLOSING SPONDYLITIS
     Dates: start: 20070621
  2. ARCOXIA [Concomitant]
     Indication: ARTHRITIS
  3. MEDROL [Concomitant]
     Indication: ARTHRITIS

REACTIONS (2)
  - Rotator cuff syndrome [Recovered/Resolved]
  - Road traffic accident [Unknown]
